FAERS Safety Report 16519368 (Version 1)
Quarter: 2019Q3

REPORT INFORMATION
  Report Type: Spontaneous
  Country: JP (occurrence: JP)
  Receive Date: 20190702
  Receipt Date: 20190702
  Transmission Date: 20191004
  Serious: Yes (Other)
  Sender: FDA-Public Use
  Company Number: JP-BAUSCH-BL-2019-018617

PATIENT
  Age: 75 Year
  Sex: Female

DRUGS (3)
  1. BRIMONIDINE TARTRATE. [Suspect]
     Active Substance: BRIMONIDINE TARTRATE
     Indication: ANGLE CLOSURE GLAUCOMA
     Dosage: USE IN BOTH EYES (TOPICAL OCULAR)
     Route: 061
     Dates: start: 201512, end: 201712
  2. DORZOLAMIDE 1 PERCENT [Concomitant]
     Indication: ANGLE CLOSURE GLAUCOMA
     Dosage: USE IN BOTH EYES (TOPICAL OCULAR), THREE TIMES DAILY
     Route: 061
     Dates: start: 201512, end: 201712
  3. BIMATOPROST 0.005 PERCENT [Concomitant]
     Indication: DEVICE FAILURE
     Dosage: USE IN BOTH EYES (TOPICAL OCULAR)
     Route: 061
     Dates: start: 201512, end: 201712

REACTIONS (7)
  - Corneal opacity [Not Recovered/Not Resolved]
  - Type IV hypersensitivity reaction [Recovering/Resolving]
  - Conjunctivitis [Unknown]
  - Corneal neovascularisation [Recovering/Resolving]
  - Conjunctival hyperaemia [Unknown]
  - Blepharitis [Recovering/Resolving]
  - Corneal infiltrates [Unknown]

NARRATIVE: CASE EVENT DATE: 201602
